FAERS Safety Report 7759632-5 (Version None)
Quarter: 2011Q3

REPORT INFORMATION
  Report Type: 
  Country: None (occurrence: None)
  Receive Date: 20110919
  Receipt Date: 20110914
  Transmission Date: 20111222
  Serious: Yes (Disabling)
  Sender: FDA-Public Use
  Company Number: DE-ROCHE-802704

PATIENT
  Sex: Female
  Weight: 62 kg

DRUGS (1)
  1. TAMIFLU [Suspect]
     Dosage: FREQUENCY : 2*1
     Route: 048
     Dates: start: 20110316, end: 20110320

REACTIONS (2)
  - AGEUSIA [None]
  - ANOSMIA [None]
